FAERS Safety Report 9532532 (Version 1)
Quarter: 2013Q2

REPORT INFORMATION
  Report Type: Spontaneous
  Country: FR (occurrence: None)
  Receive Date: 20130403
  Receipt Date: 20130403
  Transmission Date: 20140414
  Serious: Yes (Hospitalization)
  Sender: FDA-Public Use
  Company Number: US-2011-10244

PATIENT
  Age: 33 Year
  Sex: Female
  Weight: 75 kg

DRUGS (10)
  1. BUSULFEX [Suspect]
     Indication: MYELOID LEUKAEMIA
     Route: 042
     Dates: start: 20110112, end: 20110115
  2. CYCLOPHOSPHAMIDE (CYCLOPHOSPHAMIDE) [Suspect]
     Indication: MYELOID LEUKAEMIA
     Route: 042
     Dates: start: 20110117, end: 20110118
  3. INEXIUM (ESOMEPRAZOLE MAGNESIUM) (ESOMEPRAZOLE MAGNESIUM) [Concomitant]
  4. NOXAFIL (POSACONAZOLE) [Concomitant]
  5. LYRICA (PREGABALIN) [Concomitant]
  6. NEORAL (CICLOSPORIN) [Concomitant]
  7. ORACILLINE (PHENOXYMETHYLPENICILLIN) [Concomitant]
  8. ROVALCYTE (VALGANCILOVIR HYDROCHLORIDE) [Concomitant]
  9. WELLVONE (ATOVAQUONE) [Concomitant]
  10. DITROPAN (OXYBUTYNIN HYDROCHLORIDE) [Concomitant]

REACTIONS (1)
  - Viral haemorrhagic cystitis [None]
